FAERS Safety Report 19361581 (Version 1)
Quarter: 2021Q2

REPORT INFORMATION
  Report Type: Report from Study
  Country: None (occurrence: US)
  Receive Date: 20210602
  Receipt Date: 20210602
  Transmission Date: 20210717
  Serious: No
  Sender: FDA-Public Use
  Company Number: US-MDD US OPERATIONS-USW202004-000871

PATIENT
  Sex: Female
  Weight: 59.42 kg

DRUGS (2)
  1. APOKYN [Suspect]
     Active Substance: APOMORPHINE HYDROCHLORIDE
     Indication: PARKINSON^S DISEASE
     Dosage: 30 MG/3ML
     Route: 058
     Dates: start: 20170403, end: 20200301
  2. APOKYN [Suspect]
     Active Substance: APOMORPHINE HYDROCHLORIDE
     Indication: RESTLESS LEGS SYNDROME

REACTIONS (2)
  - Product use in unapproved indication [Unknown]
  - Dizziness [Unknown]
